FAERS Safety Report 5809806-5 (Version None)
Quarter: 2008Q3

REPORT INFORMATION
  Report Type: 
  Country: None (occurrence: None)
  Receive Date: 20080714
  Receipt Date: 20080714
  Transmission Date: 20090109
  Serious: Yes (Life-Threatening, Hospitalization)
  Sender: FDA-Public Use
  Company Number: None

PATIENT
  Age: 59 Year
  Sex: Female
  Weight: 52.2 kg

DRUGS (2)
  1. ENOXAPARIN SODIUM [Suspect]
     Indication: RAYNAUD'S PHENOMENON
     Dosage: 50MG Q12 SQ
     Route: 058
     Dates: start: 20080529, end: 20080608
  2. ENOXAPARIN SODIUM [Suspect]
     Indication: THROMBOSIS PROPHYLAXIS
     Dosage: 50MG Q12 SQ
     Route: 058
     Dates: start: 20080529, end: 20080608

REACTIONS (3)
  - CELLULITIS [None]
  - HAEMATOMA [None]
  - HAEMORRHAGE [None]
